FAERS Safety Report 23577071 (Version 1)
Quarter: 2024Q1

REPORT INFORMATION
  Report Type: Spontaneous
  Country: US (occurrence: US)
  Receive Date: 20240228
  Receipt Date: 20240228
  Transmission Date: 20240410
  Serious: No
  Sender: FDA-Public Use
  Company Number: US-TAKEDA-2024TUS018423

PATIENT

DRUGS (1)
  1. TRINTELLIX [Suspect]
     Active Substance: VORTIOXETINE HYDROBROMIDE
     Indication: Depression
     Dosage: 30 MILLIGRAM
     Route: 065
     Dates: start: 2013

REACTIONS (4)
  - Overdose [Unknown]
  - Product use issue [Unknown]
  - Dry mouth [Unknown]
  - Constipation [Unknown]
